FAERS Safety Report 7074833-X (Version None)
Quarter: 2010Q4

REPORT INFORMATION
  Report Type: 
  Country: None (occurrence: None)
  Receive Date: 20101029
  Receipt Date: 20101022
  Transmission Date: 20110411
  Serious: Yes (Hospitalization)
  Sender: FDA-Public Use
  Company Number: US-GILEAD-2010-0032892

PATIENT
  Age: 63 Year
  Sex: Female
  Weight: 83.536 kg

DRUGS (20)
  1. LETAIRIS [Suspect]
     Indication: PULMONARY ARTERIAL HYPERTENSION
     Route: 048
     Dates: start: 20100301
  2. TYVASO [Concomitant]
  3. REVATIO [Concomitant]
  4. OXYGEN [Concomitant]
  5. LANTUS [Concomitant]
  6. FERROUS SULFATE [Concomitant]
  7. CELLCEPT [Concomitant]
  8. TOPROL-XL [Concomitant]
  9. SPIRONOLACTONE [Concomitant]
  10. FOSAMAX [Concomitant]
  11. PRILOSEC [Concomitant]
  12. PREDNISONE [Concomitant]
  13. TORSEMIDE [Concomitant]
  14. COUMADIN [Concomitant]
  15. LISINOPRIL [Concomitant]
  16. SIMVASTATIN [Concomitant]
  17. FLEXERIL [Concomitant]
  18. PLAVIX [Concomitant]
  19. HYDROCODONE [Concomitant]
  20. ASPIRIN [Concomitant]

REACTIONS (1)
  - PNEUMONIA [None]
